FAERS Safety Report 4617865-0 (Version None)
Quarter: 2005Q1

REPORT INFORMATION
  Report Type: 
  Country: None (occurrence: None)
  Receive Date: 20050324
  Receipt Date: 20050113
  Transmission Date: 20050727
  Serious: Yes (Death, Life-Threatening)
  Sender: FDA-Public Use
  Company Number: DE-GLAXOSMITHKLINE-D0045625A

PATIENT
  Age: 23 Month
  Sex: Male
  Weight: 8.8 kg

DRUGS (1)
  1. LAMICTAL [Suspect]
     Indication: CONVULSION
     Dosage: 3TAB PER DAY
     Route: 048
     Dates: start: 20040101, end: 20041001

REACTIONS (5)
  - ACUTE PRERENAL FAILURE [None]
  - DEHYDRATION [None]
  - PNEUMONIA [None]
  - RHABDOMYOLYSIS [None]
  - SHOCK [None]
